FAERS Safety Report 6056997-X (Version None)
Quarter: 2009Q1

REPORT INFORMATION
  Report Type: 
  Country: None (occurrence: None)
  Receive Date: 20090129
  Receipt Date: 20090121
  Transmission Date: 20090719
  Serious: Yes (Hospitalization, Other)
  Sender: FDA-Public Use
  Company Number: FR-AMGEN-US330631

PATIENT
  Sex: Female

DRUGS (5)
  1. ENBREL [Suspect]
     Indication: RHEUMATOID ARTHRITIS
     Route: 058
     Dates: start: 20000501, end: 20010501
  2. ENBREL [Suspect]
     Route: 058
     Dates: start: 20060801, end: 20060901
  3. REMICADE [Suspect]
     Indication: RHEUMATOID ARTHRITIS
     Dosage: UNKNOWN
     Route: 042
     Dates: start: 20050901, end: 20060801
  4. SOLUPRED [Suspect]
     Indication: RHEUMATOID ARTHRITIS
     Route: 048
     Dates: start: 20060901
  5. HUMIRA [Suspect]
     Indication: RHEUMATOID ARTHRITIS
     Dosage: 1 DOSE 2 TIMES PER MONTH
     Route: 058
     Dates: start: 20030901, end: 20040101

REACTIONS (6)
  - BENIGN NEOPLASM OF SKIN [None]
  - CUTANEOUS TUBERCULOSIS [None]
  - DISLOCATION OF JOINT PROSTHESIS [None]
  - DRUG INEFFECTIVE [None]
  - JOINT TUBERCULOSIS [None]
  - URINARY TRACT INFECTION [None]
